FAERS Safety Report 8167818-3 (Version None)
Quarter: 2012Q1

REPORT INFORMATION
  Report Type: 
  Country: None (occurrence: None)
  Receive Date: 20120227
  Receipt Date: 20120214
  Transmission Date: 20120608
  Serious: Yes (Hospitalization, Other)
  Sender: FDA-Public Use
  Company Number: US-ROCHE-716275

PATIENT
  Sex: Male

DRUGS (14)
  1. ALCOHOL [Suspect]
     Indication: PRODUCT USED FOR UNKNOWN INDICATION
     Route: 065
  2. CITALOPRAM HYDROBROMIDE [Concomitant]
  3. OXACILLIN [Concomitant]
  4. FERROUS SULFATE TAB [Concomitant]
  5. DILTIAZEM HCL [Concomitant]
  6. B12 COMPLEX [Concomitant]
  7. OXYCODONE HCL [Concomitant]
  8. LASIX [Concomitant]
  9. PROTONIX [Concomitant]
  10. RIBAVIRIN [Suspect]
     Indication: HEPATITIS C
     Route: 065
  11. PROPANOLOLI HYDROCHLORIDUM [Concomitant]
  12. PEGASYS [Suspect]
     Indication: HEPATITIS C
     Dosage: FORM: PRE-FILLED SYRINGE. STRENGTH:180UG/0.5ML.
     Route: 065
  13. POTASSIUM CHLORIDE [Concomitant]
  14. LACTULOSE [Concomitant]

REACTIONS (15)
  - HEPATIC CIRRHOSIS [None]
  - CARDITIS [None]
  - ENDOCARDITIS [None]
  - DEPRESSION [None]
  - OSTEOARTHRITIS [None]
  - SUICIDAL IDEATION [None]
  - WEIGHT DECREASED [None]
  - FALL [None]
  - VISION BLURRED [None]
  - PRODUCT QUALITY ISSUE [None]
  - MEDICATION ERROR [None]
  - ALOPECIA [None]
  - BACILLUS INFECTION [None]
  - NO ADVERSE EVENT [None]
  - PNEUMONIA [None]
